FAERS Safety Report 7005859-X (Version None)
Quarter: 2010Q3

REPORT INFORMATION
  Report Type: 
  Country: None (occurrence: None)
  Receive Date: 20100921
  Receipt Date: 20100914
  Transmission Date: 20110219
  Serious: Yes (Death)
  Sender: FDA-Public Use
  Company Number: US-WYE-H17549810

PATIENT

DRUGS (1)
  1. TYGACIL [Suspect]
     Indication: GAS GANGRENE
     Dosage: UNKNOWN

REACTIONS (2)
  - DISEASE PROGRESSION [None]
  - GAS GANGRENE [None]
